FAERS Safety Report 6362231-3 (Version None)
Quarter: 2009Q3

REPORT INFORMATION
  Report Type: 
  Country: None (occurrence: None)
  Receive Date: 20090918
  Receipt Date: 20090720
  Transmission Date: 20100115
  Serious: No
  Sender: FDA-Public Use
  Company Number: US-ABBOTT-09P-163-0586954-00

PATIENT
  Sex: Female

DRUGS (2)
  1. HUMIRA [Suspect]
     Indication: PSORIASIS
     Route: 058
     Dates: start: 20090401, end: 20090706
  2. HUMIRA [Suspect]
     Route: 058
     Dates: start: 20090706

REACTIONS (2)
  - DRUG DOSE OMISSION [None]
  - DRUG INEFFECTIVE [None]
